FAERS Safety Report 20407996 (Version 6)
Quarter: 2022Q2

REPORT INFORMATION
  Report Type: Report from Study
  Country: US (occurrence: US)
  Receive Date: 20220201
  Receipt Date: 20220607
  Transmission Date: 20220721
  Serious: No
  Sender: FDA-Public Use
  Company Number: US-NOVARTISTESTPH-NVSC2022US020689

PATIENT
  Sex: Female

DRUGS (1)
  1. TABRECTA [Suspect]
     Active Substance: CAPMATINIB
     Indication: Lung neoplasm malignant
     Dosage: 400 MG, BID
     Route: 048
     Dates: start: 202112

REACTIONS (10)
  - Nasopharyngitis [Recovered/Resolved]
  - Hypoacusis [Unknown]
  - Throat irritation [Unknown]
  - Dysacusis [Not Recovered/Not Resolved]
  - Nasopharyngitis [Unknown]
  - Tinnitus [Unknown]
  - Ear discomfort [Unknown]
  - Product supply issue [Unknown]
  - Asthenia [Unknown]
  - Peripheral swelling [Not Recovered/Not Resolved]
